FAERS Safety Report 20484744 (Version 1)
Quarter: 2022Q1

REPORT INFORMATION
  Report Type: Report from Study
  Country: CA (occurrence: CA)
  Receive Date: 20220217
  Receipt Date: 20220217
  Transmission Date: 20220423
  Serious: Yes (Other)
  Sender: FDA-Public Use
  Company Number: CA-NOVARTISPH-NVSC2022CA033352

PATIENT
  Age: 27 Year
  Sex: Female

DRUGS (3)
  1. MONTELUKAST [Suspect]
     Active Substance: MONTELUKAST SODIUM
     Indication: Product used for unknown indication
     Dosage: 10 MG
     Route: 065
  2. RUPATADINE [Concomitant]
     Active Substance: RUPATADINE
     Indication: Product used for unknown indication
     Dosage: UNK
     Route: 065
  3. EPIPEN [Concomitant]
     Active Substance: EPINEPHRINE
     Indication: Product used for unknown indication
     Dosage: UNK
     Route: 065

REACTIONS (31)
  - Anaphylactic reaction [Unknown]
  - Syncope [Unknown]
  - Deafness [Recovered/Resolved]
  - Blindness transient [Recovered/Resolved]
  - Wheezing [Unknown]
  - Peripheral swelling [Unknown]
  - Dyspnoea [Unknown]
  - Dysphonia [Unknown]
  - Erythema [Unknown]
  - Ear pruritus [Unknown]
  - Rash pruritic [Unknown]
  - Eye swelling [Unknown]
  - Cough [Unknown]
  - Nasopharyngitis [Unknown]
  - Hypoaesthesia oral [Unknown]
  - Lip swelling [Unknown]
  - Swelling face [Unknown]
  - Swollen tongue [Unknown]
  - Dysphagia [Unknown]
  - Joint swelling [Recovered/Resolved]
  - Movement disorder [Recovered/Resolved]
  - Food allergy [Unknown]
  - Pruritus [Unknown]
  - Nausea [Unknown]
  - Vomiting [Unknown]
  - Urticaria [Recovered/Resolved]
  - Urticaria [Unknown]
  - Ear swelling [Unknown]
  - Periorbital swelling [Unknown]
  - Pruritus [Unknown]
  - Ill-defined disorder [Unknown]

NARRATIVE: CASE EVENT DATE: 20220127
